FAERS Safety Report 9732625 (Version 3)
Quarter: 2014Q2

REPORT INFORMATION
  Report Type: Report from Study
  Country: BE (occurrence: BE)
  Receive Date: 20131205
  Receipt Date: 20140530
  Transmission Date: 20141212
  Serious: Yes (Hospitalization, Other)
  Sender: FDA-Public Use
  Company Number: BE-JNJFOC-20131109531

PATIENT
  Age: 21 Year
  Sex: Female
  Weight: 79 kg

DRUGS (16)
  1. REMICADE [Suspect]
     Indication: COLITIS ULCERATIVE
     Route: 042
  2. REMICADE [Suspect]
     Indication: COLITIS ULCERATIVE
     Route: 042
     Dates: start: 20091113
  3. REMICADE [Suspect]
     Indication: COLITIS ULCERATIVE
     Route: 042
     Dates: start: 201207
  4. REMICADE [Suspect]
     Indication: COLITIS ULCERATIVE
     Route: 042
     Dates: start: 201210
  5. REMICADE [Suspect]
     Indication: COLITIS ULCERATIVE
     Route: 042
     Dates: start: 201004
  6. REMICADE [Suspect]
     Indication: COLITIS ULCERATIVE
     Route: 042
     Dates: start: 20131113
  7. REMICADE [Suspect]
     Indication: COLITIS ULCERATIVE
     Route: 042
     Dates: start: 2007, end: 2007
  8. REMICADE [Suspect]
     Indication: COLITIS ULCERATIVE
     Route: 042
     Dates: start: 20131120
  9. IMURAN [Suspect]
     Indication: COLITIS ULCERATIVE
     Route: 065
     Dates: start: 2008, end: 201307
  10. DIFLUCAN [Concomitant]
     Indication: SKIN INFECTION
     Route: 023
     Dates: start: 2013
  11. AVEENO BATH [Concomitant]
     Indication: SKIN INFECTION
     Dosage: SITZ BATH
     Route: 023
     Dates: start: 2013
  12. AUTOLOGOUS SERUM [Concomitant]
     Indication: KERATITIS
     Route: 065
     Dates: start: 201304
  13. CYCLOSPORINE [Concomitant]
     Indication: KERATITIS
     Route: 065
     Dates: start: 201308
  14. PENTASA [Concomitant]
     Indication: COLITIS ULCERATIVE
     Route: 065
     Dates: start: 2007, end: 2007
  15. MEDROL [Concomitant]
     Indication: COLITIS ULCERATIVE
     Route: 065
  16. CLIPPER [Concomitant]
     Indication: COLITIS ULCERATIVE
     Route: 065
     Dates: start: 200911

REACTIONS (7)
  - Cervical dysplasia [Unknown]
  - Eczema infected [Not Recovered/Not Resolved]
  - Psoriasis [Unknown]
  - Blindness [Unknown]
  - Keratitis [Unknown]
  - Colitis ulcerative [Unknown]
  - Alopecia [Unknown]
